FAERS Safety Report 9116490 (Version 1)
Quarter: 2013Q1

REPORT INFORMATION
  Report Type: Spontaneous
  Country: US (occurrence: US)
  Receive Date: 20130225
  Receipt Date: 20130225
  Transmission Date: 20140127
  Serious: No
  Sender: FDA-Public Use
  Company Number: US-PFIZER INC-2013065758

PATIENT
  Sex: Male

DRUGS (6)
  1. RAPAMUNE [Suspect]
     Dosage: UNK
  2. PROGRAF [Suspect]
     Dosage: UNK
  3. CELLCEPT [Suspect]
     Dosage: UNK
  4. SELENIUM [Suspect]
     Dosage: UNK
  5. ASCRIPTIN [Suspect]
     Dosage: UNK
  6. PRILOSEC [Suspect]
     Dosage: UNK

REACTIONS (1)
  - Drug hypersensitivity [Unknown]
